FAERS Safety Report 7111015-7 (Version None)
Quarter: 2010Q4

REPORT INFORMATION
  Report Type: 
  Country: None (occurrence: None)
  Receive Date: 20101108
  Receipt Date: 20101101
  Transmission Date: 20110411
  Serious: Yes (Hospitalization)
  Sender: FDA-Public Use
  Company Number: 2010SP051419

PATIENT
  Age: 69 Year
  Sex: Male

DRUGS (17)
  1. TEMOZOLOMIDE [Suspect]
     Indication: PROSTATE CANCER
     Dosage: PO
     Route: 048
     Dates: start: 20100713, end: 20100816
  2. ABT-888 [Suspect]
     Indication: PROSTATE CANCER
     Dosage: 40 MG
     Dates: start: 20100713, end: 20100816
  3. ASCORBIC ACID [Concomitant]
  4. ACETYLSALICYLIC ACID [Concomitant]
  5. CALCIUM [Concomitant]
  6. HEPAGRISEVIT FORTE-N [Concomitant]
  7. GLUCOSAMINE W/CHONDROITIN SULFATE [Concomitant]
  8. VICODIN [Concomitant]
  9. HYDROXYCHLOROQUINE [Concomitant]
  10. LORAZEPAM [Concomitant]
  11. METOPROLOL TARTRATE [Concomitant]
  12. OMEPRAZOLE [Concomitant]
  13. VIGRAN [Concomitant]
  14. OXYCODONE HCL [Concomitant]
  15. PREDNISONE [Concomitant]
  16. PROCHLORPERAZINE EDISYLATE [Concomitant]
  17. ONDANSETRON [Concomitant]

REACTIONS (1)
  - COLITIS [None]
